FAERS Safety Report 20480389 (Version 3)
Quarter: 2022Q2

REPORT INFORMATION
  Report Type: Spontaneous
  Country: JP (occurrence: JP)
  Receive Date: 20220216
  Receipt Date: 20220422
  Transmission Date: 20220721
  Serious: Yes (Other)
  Sender: FDA-Public Use
  Company Number: JP-ABBVIE-22K-087-4274067-00

PATIENT
  Age: 80 Year
  Sex: Male

DRUGS (1)
  1. GLECAPREVIR\PIBRENTASVIR [Suspect]
     Active Substance: GLECAPREVIR\PIBRENTASVIR
     Indication: Hepatic cirrhosis
     Route: 048

REACTIONS (5)
  - Atrioventricular block complete [Unknown]
  - Hepatocellular carcinoma [Recovering/Resolving]
  - Hepatocellular carcinoma [Recovering/Resolving]
  - Colorectal adenoma [Unknown]
  - Intracranial aneurysm [Unknown]
